FAERS Safety Report 6265473-0 (Version None)
Quarter: 2009Q3

REPORT INFORMATION
  Report Type: 
  Country: None (occurrence: None)
  Receive Date: 20090713
  Receipt Date: 20090701
  Transmission Date: 20100115
  Serious: Yes (Death, Hospitalization)
  Sender: FDA-Public Use
  Company Number: US-PFIZER INC-2009235673

PATIENT
  Sex: Female
  Weight: 68.027 kg

DRUGS (2)
  1. PROCARDIA [Suspect]
     Indication: HYPERTENSION
     Route: 048
     Dates: start: 20050101
  2. CYCLOBENZAPRINE [Concomitant]

REACTIONS (2)
  - HEPATIC CIRRHOSIS [None]
  - JAUNDICE [None]
